FAERS Safety Report 17341577 (Version 1)
Quarter: 2020Q1

REPORT INFORMATION
  Report Type: Spontaneous
  Country: US (occurrence: US)
  Receive Date: 20200114
  Receipt Date: 20200114
  Transmission Date: 20200409
  Serious: No
  Sender: FDA-Public Use
  Company Number: None

PATIENT
  Sex: Female

DRUGS (1)
  1. COSENTYX [Suspect]
     Active Substance: SECUKINUMAB
     Indication: PSORIASIS
     Dosage: OTHER FREQUENCY: EVERY 4 WEEKS
     Route: 058
     Dates: start: 201908

REACTIONS (7)
  - Conjunctivitis [None]
  - Urinary tract infection [None]
  - Tinea infection [None]
  - Skin discolouration [None]
  - Pruritus [None]
  - Streptococcus test positive [None]
  - Pneumonia [None]
